FAERS Safety Report 8608491 (Version 2)
Quarter: 2012Q4

REPORT INFORMATION
  Report Type: 
  Country: US (occurrence: US)
  Receive Date: 20120611
  Receipt Date: 20120921
  Transmission Date: 20130627
  Serious: Yes (Hospitalization)
  Sender: FDA-Public Use
  Company Number: US-ELI_LILLY_AND_COMPANY-US201204009735

PATIENT
  Age: 65 Year
  Sex: Female

DRUGS (10)
  1. FORTEO [Suspect]
     Indication: OSTEOPOROSIS
     Dosage: 20 ug, qd
     Dates: start: 20120418, end: 20120426
  2. FORTEO [Suspect]
     Dosage: 20 ug, qd
     Dates: start: 20120731
  3. CYMBALTA [Suspect]
     Indication: DEPRESSION
     Dosage: UNK
     Dates: start: 2009
  4. PROZAC [Suspect]
     Indication: DEPRESSION
  5. PROZAC [Suspect]
     Indication: DEPRESSION
     Dosage: 80 mg, qd
  6. FLEXERIL [Concomitant]
  7. TRAZODONE [Concomitant]
  8. DEPAKOTE [Concomitant]
  9. PARAFON FORTE [Concomitant]
  10. CALCIUM [Concomitant]

REACTIONS (9)
  - Small intestinal obstruction [Recovered/Resolved]
  - Malaise [Unknown]
  - Abdominal distension [Unknown]
  - Pain [Unknown]
  - Feeling abnormal [Unknown]
  - Insomnia [Unknown]
  - Migraine [Not Recovered/Not Resolved]
  - Incision site infection [Recovering/Resolving]
  - Wound complication [Recovering/Resolving]
